FAERS Safety Report 9371864 (Version 2)
Quarter: 2013Q3

REPORT INFORMATION
  Report Type: Spontaneous
  Country: US (occurrence: None)
  Receive Date: 20130625
  Receipt Date: 20130717
  Transmission Date: 20140515
  Serious: Yes (Hospitalization)
  Sender: FDA-Public Use
  Company Number: 2013AP006204

PATIENT
  Age: 15 Year
  Sex: Female

DRUGS (2)
  1. METFORMIN [Suspect]
     Indication: INTENTIONAL OVERDOSE
  2. QUETIAPINE [Suspect]
     Indication: INTENTIONAL OVERDOSE

REACTIONS (4)
  - Hypoglycaemia [None]
  - Lactic acidosis [None]
  - Hypophagia [None]
  - Intentional overdose [None]
